FAERS Safety Report 5470661-7 (Version None)
Quarter: 2007Q3

REPORT INFORMATION
  Report Type: 
  Country: None (occurrence: None)
  Receive Date: 20070925
  Receipt Date: 20070907
  Transmission Date: 20080115
  Serious: Yes (Life-Threatening, Hospitalization, Other)
  Sender: FDA-Public Use
  Company Number: CIP07001764

PATIENT
  Age: 60 Year
  Sex: Male

DRUGS (8)
  1. DANTRIUM [Suspect]
     Indication: NEUROLEPTIC MALIGNANT SYNDROME
     Dosage: 25 MG THREE TIMES DAILY, ORAL 50 MG THREE TIMES DAILY, ORAL
     Route: 048
     Dates: start: 20070822, end: 20070828
  2. DANTRIUM [Suspect]
     Indication: NEUROLEPTIC MALIGNANT SYNDROME
     Dosage: 25 MG THREE TIMES DAILY, ORAL 50 MG THREE TIMES DAILY, ORAL
     Route: 048
     Dates: start: 20070829, end: 20070829
  3. LASIX [Suspect]
     Indication: CARDIAC FAILURE
     Dosage: 20 MG DAILY, ORAL 40 MG, DAILY, IV BOLUS
     Route: 048
     Dates: start: 20070825, end: 20070825
  4. LASIX [Suspect]
     Indication: CARDIAC FAILURE
     Dosage: 20 MG DAILY, ORAL 40 MG, DAILY, IV BOLUS
     Route: 048
     Dates: start: 20070826, end: 20070829
  5. LEVOTHYROXINE SODIUM [Concomitant]
  6. GRAMALIL (TIAPRIDE HYDROCHLORIDE) [Concomitant]
  7. DEPAS (ETIZOLAM) [Concomitant]
  8. RISPERDAL [Concomitant]

REACTIONS (12)
  - ACUTE RESPIRATORY DISTRESS SYNDROME [None]
  - ATRIAL FIBRILLATION [None]
  - CARDIAC FAILURE CONGESTIVE [None]
  - CARDIOMEGALY [None]
  - HAEMODIALYSIS [None]
  - HYPERVENTILATION [None]
  - HYPOXIA [None]
  - OXYGEN SATURATION DECREASED [None]
  - RALES [None]
  - SPUTUM ABNORMAL [None]
  - SPUTUM DISCOLOURED [None]
  - THIRST [None]
